FAERS Safety Report 9397984 (Version 1)
Quarter: 2013Q3

REPORT INFORMATION
  Report Type: Spontaneous
  Country: AU (occurrence: None)
  Receive Date: 20130709
  Receipt Date: 20130709
  Transmission Date: 20140515
  Serious: Yes (Hospitalization)
  Sender: FDA-Public Use
  Company Number: FK201302389

PATIENT
  Age: 54 Year
  Sex: Male

DRUGS (2)
  1. CARBOPLATIN [Suspect]
     Indication: PANCREATIC NEUROENDOCRINE TUMOUR METASTATIC
     Dosage: AUC 5
  2. ETOPOSIDE (MANUFACTURER UNKNOWN) [Suspect]
     Indication: PANCREATIC NEUROENDOCRINE TUMOUR METASTATIC

REACTIONS (12)
  - Disseminated intravascular coagulation [None]
  - Fatigue [None]
  - Dyspnoea [None]
  - Haematuria [None]
  - Contusion [None]
  - Haemorrhage [None]
  - Haemoglobin decreased [None]
  - Platelet count decreased [None]
  - Multi-organ failure [None]
  - Lethargy [None]
  - Renal impairment [None]
  - International normalised ratio increased [None]
